FAERS Safety Report 8433244-2 (Version None)
Quarter: 2012Q2

REPORT INFORMATION
  Report Type: 
  Country: None (occurrence: None)
  Receive Date: 20120323
  Receipt Date: 20111215
  Transmission Date: 20120825
  Serious: Yes (Hospitalization)
  Sender: FDA-Public Use
  Company Number: 163-21880-11083364

PATIENT
  Age: 77 Year
  Sex: Male

DRUGS (3)
  1. ONDANSETRON [Concomitant]
  2. REVLIMID [Suspect]
     Indication: MYELOPROLIFERATIVE DISORDER
     Dosage: 5 MG, DAILY FOR 21 DAYS OF A 28 DAY CYCLE, PO
     Route: 048
     Dates: start: 20110722
  3. REVLIMID [Suspect]
     Indication: MYELODYSPLASTIC SYNDROME
     Dosage: 5 MG, DAILY FOR 21 DAYS OF A 28 DAY CYCLE, PO
     Route: 048
     Dates: start: 20110722

REACTIONS (3)
  - NEPHROLITHIASIS [None]
  - NAUSEA [None]
  - ABDOMINAL DISCOMFORT [None]
